FAERS Safety Report 6400161-9 (Version None)
Quarter: 2009Q4

REPORT INFORMATION
  Report Type: 
  Country: None (occurrence: None)
  Receive Date: 20091014
  Receipt Date: 20090929
  Transmission Date: 20100525
  Serious: Yes (Life-Threatening)
  Sender: FDA-Public Use
  Company Number: GB-GENENTECH-291693

PATIENT
  Age: 64 Year
  Sex: Male

DRUGS (10)
  1. MABTHERA [Suspect]
     Indication: LYMPHOMA
     Dosage: 700 MG, UNK
     Route: 042
     Dates: start: 20080701, end: 20090403
  2. AMPHOTERICIN B [Concomitant]
     Indication: DRUG USE FOR UNKNOWN INDICATION
  3. CARMUSTINE [Concomitant]
     Indication: DRUG USE FOR UNKNOWN INDICATION
  4. CISPLATIN [Concomitant]
     Indication: DRUG USE FOR UNKNOWN INDICATION
  5. CYTARABINE [Concomitant]
     Indication: DRUG USE FOR UNKNOWN INDICATION
  6. DEXAMETHASONE 0.5MG TAB [Concomitant]
     Indication: DRUG USE FOR UNKNOWN INDICATION
  7. ETOPOSIDE [Concomitant]
     Indication: DRUG USE FOR UNKNOWN INDICATION
  8. MELPHALAN [Concomitant]
     Indication: DRUG USE FOR UNKNOWN INDICATION
  9. NITRAZEPAM [Concomitant]
     Indication: DRUG USE FOR UNKNOWN INDICATION
  10. ZOLPIDEM TARTRATE [Concomitant]
     Indication: DRUG USE FOR UNKNOWN INDICATION

REACTIONS (1)
  - PROGRESSIVE MULTIFOCAL LEUKOENCEPHALOPATHY [None]
